FAERS Safety Report 10251592 (Version 1)
Quarter: 2014Q2

REPORT INFORMATION
  Report Type: Spontaneous
  Country: GB (occurrence: GB)
  Receive Date: 20140623
  Receipt Date: 20140623
  Transmission Date: 20141212
  Serious: Yes (Other)
  Sender: FDA-Public Use
  Company Number: GB-ROCHE-1422271

PATIENT
  Sex: Male

DRUGS (4)
  1. AVASTIN [Suspect]
     Indication: GASTROINTESTINAL CARCINOMA
     Route: 065
  2. AVASTIN [Suspect]
     Indication: METASTASES TO LUNG
  3. OXALIPLATIN [Concomitant]
  4. 5-FU [Concomitant]

REACTIONS (1)
  - Disease progression [Unknown]
